FAERS Safety Report 7296908-2 (Version None)
Quarter: 2011Q1

REPORT INFORMATION
  Report Type: 
  Country: None (occurrence: None)
  Receive Date: 20110216
  Receipt Date: 20110209
  Transmission Date: 20110831
  Serious: Yes (Hospitalization, Other)
  Sender: FDA-Public Use
  Company Number: GB-JNJFOC-20110204577

PATIENT
  Sex: Female
  Weight: 50.8 kg

DRUGS (15)
  1. MOVICOL [Concomitant]
  2. TRIMETHOPRIM [Suspect]
     Indication: URINARY TRACT INFECTION
  3. ZOPICLONE [Concomitant]
  4. DALTEPARIN SODIUM [Suspect]
     Route: 058
  5. WARFARIN SODIUM [Suspect]
  6. IBUPROFEN [Suspect]
     Indication: PRODUCT USED FOR UNKNOWN INDICATION
     Route: 048
  7. DALTEPARIN SODIUM [Suspect]
     Indication: DEEP VEIN THROMBOSIS
     Route: 058
  8. FENTANYL [Concomitant]
     Route: 062
  9. LEVOTHYROXINE SODIUM [Concomitant]
  10. FUROSEMIDE [Concomitant]
  11. WARFARIN SODIUM [Suspect]
     Indication: DEEP VEIN THROMBOSIS
  12. WARFARIN SODIUM [Suspect]
  13. PARACETAMOL [Concomitant]
  14. OMEPRAZOLE [Concomitant]
  15. DIHYDROCODEINE BITARTRATE INJ [Concomitant]

REACTIONS (4)
  - BLOOD PRESSURE DECREASED [None]
  - INJECTION SITE HAEMORRHAGE [None]
  - INTERNATIONAL NORMALISED RATIO INCREASED [None]
  - CONTUSION [None]
